FAERS Safety Report 8127102-0 (Version None)
Quarter: 2011Q4

REPORT INFORMATION
  Report Type: 
  Country: None (occurrence: None)
  Receive Date: 20111227
  Receipt Date: 20111007
  Transmission Date: 20120403
  Serious: No
  Sender: FDA-Public Use
  Company Number: PHHY2011US11646

PATIENT
  Age: 64 Year
  Sex: Male

DRUGS (2)
  1. GILENYA [Suspect]
     Indication: RELAPSING-REMITTING MULTIPLE SCLEROSIS
     Dosage: 0.5 MG, QD, ORAL
     Route: 048
     Dates: start: 20110210
  2. FAMPRIDINE (FAMPRIDINE) [Concomitant]

REACTIONS (3)
  - RASH GENERALISED [None]
  - PRURITUS [None]
  - URTICARIA [None]
